FAERS Safety Report 6019875-8 (Version None)
Quarter: 2008Q4

REPORT INFORMATION
  Report Type: 
  Country: None (occurrence: None)
  Receive Date: 20081222
  Receipt Date: 20081210
  Transmission Date: 20090506
  Serious: Yes (Other)
  Sender: FDA-Public Use
  Company Number: 235642J08USA

PATIENT
  Age: 43 Year
  Sex: Female
  Weight: 84 kg

DRUGS (8)
  1. REBIF [Suspect]
     Indication: MULTIPLE SCLEROSIS
     Dosage: 44 MCG, 3 IN 1 WEEKS, SUBCUTANEOUS
     Route: 058
     Dates: start: 20061215
  2. IBUPROFEN [Concomitant]
  3. PROVIGIL [Concomitant]
  4. LORATADINE [Concomitant]
  5. PREVACID [Concomitant]
  6. FISH OIL (FISH OIL) [Concomitant]
  7. MULTIVITAMIN [Concomitant]
  8. VITAMIN E [Concomitant]

REACTIONS (3)
  - BREAST CALCIFICATIONS [None]
  - BREAST HYPERPLASIA [None]
  - MAMMOGRAM ABNORMAL [None]
